FAERS Safety Report 7216825-3 (Version None)
Quarter: 2011Q1

REPORT INFORMATION
  Report Type: 
  Country: None (occurrence: None)
  Receive Date: 20110110
  Receipt Date: 20101229
  Transmission Date: 20110831
  Serious: No
  Sender: FDA-Public Use
  Company Number: US-BIOGENIDEC-2010BI045267

PATIENT
  Age: 48 Year
  Sex: Female

DRUGS (1)
  1. AVONEX [Suspect]
     Indication: MULTIPLE SCLEROSIS
     Route: 030
     Dates: start: 20101119

REACTIONS (15)
  - SYNOVIAL FLUID CRYSTAL PRESENT [None]
  - RHINORRHOEA [None]
  - GLUCOSE TOLERANCE IMPAIRED [None]
  - SUICIDAL IDEATION [None]
  - ARTHRITIS [None]
  - JOINT EFFUSION [None]
  - PAIN [None]
  - DRUG INEFFECTIVE [None]
  - GOUT [None]
  - FIBROMYALGIA [None]
  - GAIT DISTURBANCE [None]
  - PAIN IN EXTREMITY [None]
  - MUSCULAR WEAKNESS [None]
  - VITAMIN D DECREASED [None]
  - ARTHRALGIA [None]
